FAERS Safety Report 13256805 (Version 1)
Quarter: 2017Q1

REPORT INFORMATION
  Report Type: Other
  Country: FR (occurrence: FR)
  Receive Date: 20170221
  Receipt Date: 20170221
  Transmission Date: 20170428
  Serious: Yes (Hospitalization)
  Sender: FDA-Public Use
  Company Number: FR-EMCURE PHARMS-2017HTG00031

PATIENT
  Age: 58 Year
  Sex: Female

DRUGS (3)
  1. BICNU [Suspect]
     Active Substance: CARMUSTINE
     Indication: B-CELL LYMPHOMA
     Dosage: 420 MG, ONCE
     Route: 042
     Dates: start: 20160412, end: 20160412
  2. CYTARABINE ACCORD [Suspect]
     Active Substance: CYTARABINE
     Indication: B-CELL LYMPHOMA
     Dosage: 280 MG, 1X/DAY
     Route: 042
     Dates: start: 20160413, end: 20160415
  3. ETOPOPHOS [Suspect]
     Active Substance: ETOPOSIDE PHOSPHATE
     Dosage: 280 MG, 1X/DAY
     Route: 042
     Dates: start: 20160413, end: 20160415

REACTIONS (8)
  - Immunosuppression [Unknown]
  - Lung disorder [Recovered/Resolved]
  - Bone marrow failure [Recovered/Resolved]
  - Enterobacter test positive [Unknown]
  - Staphylococcal infection [Unknown]
  - Pulmonary mass [Unknown]
  - Pleural effusion [Unknown]
  - Sepsis [Unknown]

NARRATIVE: CASE EVENT DATE: 20160414
